FAERS Safety Report 6381945-2 (Version None)
Quarter: 2009Q3

REPORT INFORMATION
  Report Type: 
  Country: None (occurrence: None)
  Receive Date: 20090930
  Receipt Date: 20090702
  Transmission Date: 20100115
  Serious: Yes (Death)
  Sender: FDA-Public Use
  Company Number: US-TYCO HEALTHCARE/MALLINCKRODT-T200901332

PATIENT
  Age: 40 Year
  Sex: Male

DRUGS (1)
  1. HYDROMORPHONE [Suspect]
     Indication: OROPHARYNGEAL PAIN
     Dosage: 3 INJECTIONS IN 9 HOURS
     Route: 042

REACTIONS (1)
  - OVERDOSE [None]
